APPROVED DRUG PRODUCT: ESGIC-PLUS
Active Ingredient: ACETAMINOPHEN; BUTALBITAL; CAFFEINE
Strength: 500MG;50MG;40MG
Dosage Form/Route: TABLET;ORAL
Application: A089451 | Product #001
Applicant: MIKART LLC
Approved: May 23, 1988 | RLD: No | RS: No | Type: DISCN